FAERS Safety Report 6640590-1 (Version None)
Quarter: 2010Q1

REPORT INFORMATION
  Report Type: 
  Country: None (occurrence: None)
  Receive Date: 20100318
  Receipt Date: 20100309
  Transmission Date: 20100710
  Serious: Yes (Other)
  Sender: FDA-Public Use
  Company Number: AU-BRISTOL-MYERS SQUIBB COMPANY-14808687

PATIENT
  Age: 53 Year
  Sex: Male

DRUGS (11)
  1. EFAVIRENZ TABS [Suspect]
     Indication: HIV INFECTION
     Route: 065
  2. ATAZANAVIR [Suspect]
     Indication: HIV INFECTION
     Dosage: TABS
     Route: 065
  3. DIDANOSINE [Suspect]
     Indication: HIV INFECTION
  4. LAMIVUDINE [Suspect]
     Indication: HIV INFECTION
  5. ZIDOVUDINE [Suspect]
     Indication: HIV INFECTION
  6. RITONAVIR [Suspect]
     Indication: HIV INFECTION
  7. NELFINAVIR [Suspect]
     Indication: HIV INFECTION
  8. NEVIRAPINE [Suspect]
     Indication: HIV INFECTION
  9. SAQUINAVIR [Suspect]
     Indication: HIV INFECTION
  10. EMTRICITABINE [Suspect]
     Indication: HIV INFECTION
  11. TENOFOVIR [Suspect]
     Indication: HIV INFECTION

REACTIONS (1)
  - PARKINSONISM [None]
